FAERS Safety Report 8093187-3 (Version None)
Quarter: 2012Q1

REPORT INFORMATION
  Report Type: 
  Country: None (occurrence: None)
  Receive Date: 20120131
  Receipt Date: 20120119
  Transmission Date: 20120608
  Serious: Yes (Other)
  Sender: FDA-Public Use
  Company Number: DE-ELI_LILLY_AND_COMPANY-DE201201005554

PATIENT
  Age: 71 Year
  Sex: Male

DRUGS (2)
  1. HUMULIN R [Suspect]
     Indication: TYPE 1 DIABETES MELLITUS
     Dosage: UNK, PRN
     Dates: start: 19920101
  2. SPENGLERSAN KOLLOID G [Concomitant]
     Dosage: UNK

REACTIONS (4)
  - VASCULAR GRAFT [None]
  - DIABETIC NEUROPATHY [None]
  - CHILLS [None]
  - HYPOGLYCAEMIA [None]
